FAERS Safety Report 10067878 (Version 2)
Quarter: 2014Q2

REPORT INFORMATION
  Report Type: Spontaneous
  Country: SK (occurrence: SK)
  Receive Date: 20140409
  Receipt Date: 20140409
  Transmission Date: 20141212
  Serious: Yes (Other)
  Sender: FDA-Public Use
  Company Number: SK-009507513-1402SVK011529

PATIENT
  Age: 48 Year
  Sex: Male

DRUGS (1)
  1. INTRONA [Suspect]
     Indication: ADJUVANT THERAPY
     Dosage: UNK
     Dates: start: 20130610, end: 20140123

REACTIONS (3)
  - Mononeuropathy [Unknown]
  - Deep vein thrombosis [Unknown]
  - Pyrexia [Unknown]
